FAERS Safety Report 12631612 (Version 2)
Quarter: 2016Q3

REPORT INFORMATION
  Report Type: Spontaneous
  Country: US (occurrence: US)
  Receive Date: 20160808
  Receipt Date: 20160808
  Transmission Date: 20161109
  Serious: No
  Sender: FDA-Public Use
  Company Number: US-BEH-2015054922

PATIENT
  Age: 43 Year
  Sex: Female
  Weight: 76 kg

DRUGS (9)
  1. ALEVE [Concomitant]
     Active Substance: NAPROXEN SODIUM
  2. LEVOTHYROXINE. [Concomitant]
     Active Substance: LEVOTHYROXINE
  3. ACETAMINOPHEN. [Concomitant]
     Active Substance: ACETAMINOPHEN
  4. DIPHENHYDRAMINE. [Concomitant]
     Active Substance: DIPHENHYDRAMINE
  5. CELEXA [Concomitant]
     Active Substance: CITALOPRAM HYDROBROMIDE
  6. HIZENTRA [Suspect]
     Active Substance: HUMAN IMMUNOGLOBULIN G
     Indication: IMMUNODEFICIENCY COMMON VARIABLE
     Route: 058
     Dates: start: 20151015, end: 20151015
  7. LMX [Concomitant]
     Active Substance: LIDOCAINE
  8. EPIPEN [Concomitant]
     Active Substance: EPINEPHRINE
  9. CEFDINIR. [Concomitant]
     Active Substance: CEFDINIR

REACTIONS (2)
  - Pruritus [Unknown]
  - Urticaria [Unknown]

NARRATIVE: CASE EVENT DATE: 20151016
